FAERS Safety Report 8171364-0 (Version None)
Quarter: 2012Q1

REPORT INFORMATION
  Report Type: 
  Country: None (occurrence: None)
  Receive Date: 20120104
  Receipt Date: 20111206
  Transmission Date: 20120608
  Serious: No
  Sender: FDA-Public Use
  Company Number: 2011HGS-002923

PATIENT
  Age: 45 Year
  Sex: Female
  Weight: 72.5755 kg

DRUGS (17)
  1. PROVIGIL [Concomitant]
  2. PLAQUENIL (HYDROXYCHLOROQUINE SULFATE)(HYDROXYCHLOROQUINE SULFATE) [Concomitant]
  3. PREVACID(LANSOPRAZOLE) (LANSOPRAZOLE) [Concomitant]
  4. LORAZEPAM [Concomitant]
  5. LYRICA [Concomitant]
  6. FUROSEMIDE [Concomitant]
  7. ESTRACE(ESTRADIOL)(ESTRADIOL) [Concomitant]
  8. LEXAPRO(ESCITALOPRAM OXALATE)(ESCITALOPRAM OXALATE) [Concomitant]
  9. TYLENOL (PARACETAMOL) (PARACETAMOL) [Concomitant]
  10. IMITREX(SUMATRIPTAN SUCCINATE)(SUMATRIPTAN SUCCINATE) [Concomitant]
  11. FENTANYL [Concomitant]
  12. DHEA(PRASTERONE)(PRASTERONE) [Concomitant]
  13. MUCINEX(GUAIFENESIN)(GUAIFENESIN) [Concomitant]
  14. DIOVAN [Concomitant]
  15. FERROUS SULFATE(FERROUS SULFATE)(FERROUS SULFATE) [Concomitant]
  16. PREDNISONE [Concomitant]
  17. BENLYSTA [Suspect]
     Indication: SYSTEMIC LUPUS ERYTHEMATOSUS
     Dosage: 10 MG/KG, 1 IN 28 D, INTRAVENOUS DRIP
     Route: 041
     Dates: start: 20111111

REACTIONS (11)
  - INFUSION [None]
  - PRURITUS GENERALISED [None]
  - INSOMNIA [None]
  - CHEST PAIN [None]
  - DIARRHOEA [None]
  - PAIN IN EXTREMITY [None]
  - GASTROOESOPHAGEAL REFLUX DISEASE [None]
  - HEADACHE [None]
  - NAUSEA [None]
  - ABDOMINAL PAIN UPPER [None]
  - MIGRAINE [None]
